FAERS Safety Report 13485853 (Version 2)
Quarter: 2017Q2

REPORT INFORMATION
  Report Type: Spontaneous
  Country: RS (occurrence: RS)
  Receive Date: 20170426
  Receipt Date: 20170601
  Transmission Date: 20170830
  Serious: Yes (Other)
  Sender: FDA-Public Use
  Company Number: RS-PFIZER INC-2017178230

PATIENT
  Age: 47 Year
  Sex: Male

DRUGS (6)
  1. TRITACE [Concomitant]
     Active Substance: RAMIPRIL
     Indication: HYPERTENSION
     Dosage: 2.5 MG, 1X/DAY, 1X1/2TBL
  2. SUNITINIB MALATE. [Suspect]
     Active Substance: SUNITINIB MALATE
     Dosage: 50 MG, CYCLIC, REGIMEN 4/2 WEEKS
     Route: 048
     Dates: start: 2015, end: 2016
  3. PHENOBARBITONE /00023201/ [Concomitant]
     Active Substance: PHENOBARBITAL
     Dosage: UNK
  4. TRITACE COMP [Concomitant]
     Indication: HYPERTENSION
     Dosage: 5 MG, 1X/DAY, 1/2TBL  IN THE MORNING
  5. SUNITINIB MALATE. [Suspect]
     Active Substance: SUNITINIB MALATE
     Indication: METASTATIC RENAL CELL CARCINOMA
     Dosage: 50 MG, CYCLIC, REGIMEN 4/2 WEEKS
     Route: 048
     Dates: start: 201311, end: 201509
  6. SUNITINIB MALATE. [Suspect]
     Active Substance: SUNITINIB MALATE
     Dosage: 50 MG, CYCLIC, REGIMEN 4/2 WEEKS
     Route: 048
     Dates: start: 2016

REACTIONS (11)
  - Respiratory tract infection [Unknown]
  - Condition aggravated [Recovered/Resolved]
  - Musculoskeletal pain [Unknown]
  - Vertigo [Unknown]
  - Rash [Unknown]
  - Cerebral haematoma [Recovered/Resolved]
  - Yellow skin [Unknown]
  - Memory impairment [Unknown]
  - Gamma-glutamyltransferase increased [Recovered/Resolved]
  - Fatigue [Unknown]
  - Headache [Unknown]

NARRATIVE: CASE EVENT DATE: 201407
